FAERS Safety Report 6365783-2 (Version None)
Quarter: 2009Q3

REPORT INFORMATION
  Report Type: 
  Country: None (occurrence: None)
  Receive Date: 20090919
  Receipt Date: 20090826
  Transmission Date: 20100115
  Serious: No
  Sender: FDA-Public Use
  Company Number: US-ABBOTT-09P-163-0593787-00

PATIENT
  Sex: Female
  Weight: 97.61 kg

DRUGS (3)
  1. HUMIRA [Suspect]
     Indication: CROHN'S DISEASE
     Dates: start: 20090727
  2. HUMIRA [Suspect]
     Dates: start: 20090818
  3. HUMIRA [Suspect]
     Dates: start: 20090824

REACTIONS (1)
  - INJECTION SITE ERYTHEMA [None]
